FAERS Safety Report 16884294 (Version 5)
Quarter: 2019Q4

REPORT INFORMATION
  Report Type: Spontaneous
  Country: CA (occurrence: CA)
  Receive Date: 20191004
  Receipt Date: 20191227
  Transmission Date: 20200122
  Serious: Yes (Other)
  Sender: FDA-Public Use
  Company Number: CA-HORIZON-RAV-0261-2019

PATIENT
  Age: 34 Year
  Sex: Female
  Weight: 99 kg

DRUGS (11)
  1. AMMONUL IV [Concomitant]
  2. JAMP FERROUS SULFATE [Concomitant]
     Active Substance: FERROUS SULFATE
  3. L-ARGININE [Concomitant]
     Active Substance: ARGININE
  4. PNS LACTULOSE [Concomitant]
  5. JANUVIA [Concomitant]
     Active Substance: SITAGLIPTIN PHOSPHATE
  6. CITRULLINE [Concomitant]
     Active Substance: CITRULLINE
  7. RAVICTI [Suspect]
     Active Substance: GLYCEROL PHENYLBUTYRATE
     Indication: CARBAMOYL PHOSPHATE SYNTHETASE DEFICIENCY
     Dosage: 4.4G (=4ML) QID X 1 MONTH AND 3 REPEATS
     Route: 048
     Dates: start: 20190211
  8. VENTOLIN HFA [Concomitant]
     Active Substance: ALBUTEROL SULFATE
  9. BENZOATE 333 [Concomitant]
     Dosage: 33 ML
  10. JAMP VITAMIN D [Concomitant]
  11. APO-LEVETIRACETAM [Concomitant]
     Active Substance: LEVETIRACETAM

REACTIONS (5)
  - Weight increased [Recovering/Resolving]
  - C-reactive protein increased [Unknown]
  - Ammonia increased [Recovered/Resolved]
  - Influenza [Recovering/Resolving]
  - Ammonia increased [Recovered/Resolved]

NARRATIVE: CASE EVENT DATE: 2019
